FAERS Safety Report 10400183 (Version 2)
Quarter: 2014Q3

REPORT INFORMATION
  Report Type: Spontaneous
  Country: US (occurrence: US)
  Receive Date: 20140821
  Receipt Date: 20140922
  Transmission Date: 20150326
  Serious: No
  Sender: FDA-Public Use
  Company Number: US-PFIZER INC-2014229663

PATIENT
  Age: 42 Year
  Sex: Female
  Weight: 119.3 kg

DRUGS (18)
  1. PREDNISONE. [Concomitant]
     Active Substance: PREDNISONE
     Dosage: 60 MG, DAILY
     Route: 048
  2. VFEND [Suspect]
     Active Substance: VORICONAZOLE
     Indication: PROPHYLAXIS AGAINST TRANSPLANT REJECTION
     Dosage: 200 MG, 2X/DAY
     Route: 048
  3. HYDROCORTISONE. [Concomitant]
     Active Substance: HYDROCORTISONE
     Dosage: 10 MG, 4X/DAY
     Route: 048
  4. ERGOCALCIFEROL. [Concomitant]
     Active Substance: ERGOCALCIFEROL
     Dosage: 2000 IU, 1X/DAY
     Route: 048
  5. VFEND [Suspect]
     Active Substance: VORICONAZOLE
     Indication: PULMONARY MASS
  6. PREDNISONE. [Concomitant]
     Active Substance: PREDNISONE
     Dosage: 20 MG, DAILY
     Route: 048
  7. PREDNISONE. [Concomitant]
     Active Substance: PREDNISONE
     Dosage: 90 MG, DAILY
     Route: 048
  8. PREDNISONE. [Concomitant]
     Active Substance: PREDNISONE
     Dosage: 50 MG, DAILY
     Route: 048
  9. LANTUS [Concomitant]
     Active Substance: INSULIN GLARGINE
     Indication: DIABETES MELLITUS
     Dosage: UNK
  10. INSULIN [Concomitant]
     Active Substance: INSULIN NOS
     Indication: DIABETES MELLITUS
     Dosage: UNK
  11. PREDNISONE. [Concomitant]
     Active Substance: PREDNISONE
     Dosage: 80 MG, DAILY
     Route: 048
  12. PREDNISONE. [Concomitant]
     Active Substance: PREDNISONE
     Dosage: 30 MG, DAILY
     Route: 048
  13. PREDNISONE. [Concomitant]
     Active Substance: PREDNISONE
     Dosage: 10 MG, DAILY
     Route: 048
  14. ZYRTEC [Suspect]
     Active Substance: CETIRIZINE HYDROCHLORIDE
     Dosage: 10 MG, 1X/DAY
     Route: 048
  15. GLEEVEC [Suspect]
     Active Substance: IMATINIB MESYLATE
     Indication: ACUTE LYMPHOCYTIC LEUKAEMIA
     Dosage: 300 MG, DAILY
     Route: 048
     Dates: start: 20131011
  16. PREDNISONE. [Concomitant]
     Active Substance: PREDNISONE
     Indication: GRAFT VERSUS HOST DISEASE
     Dosage: 100 MG, DAILY
     Route: 048
  17. PREDNISONE. [Concomitant]
     Active Substance: PREDNISONE
     Dosage: 40 MG, DAILY
     Route: 048
  18. PREDNISONE. [Concomitant]
     Active Substance: PREDNISONE
     Dosage: 70 MG, DAILY
     Route: 048

REACTIONS (3)
  - Oedema [Unknown]
  - Muscle spasms [Unknown]
  - Abdominal discomfort [Unknown]
